FAERS Safety Report 6756220-4 (Version None)
Quarter: 2010Q2

REPORT INFORMATION
  Report Type: 
  Country: None (occurrence: None)
  Receive Date: 20100604
  Receipt Date: 20100531
  Transmission Date: 20101027
  Serious: Yes (Other)
  Sender: FDA-Public Use
  Company Number: BR-SANOFI-AVENTIS-2010SA031266

PATIENT
  Age: 9 Year
  Sex: Female
  Weight: 32 kg

DRUGS (4)
  1. SOLOSTAR [Suspect]
     Indication: TYPE 1 DIABETES MELLITUS
     Dates: start: 20090401
  2. APIDRA SOLOSTAR [Suspect]
     Dosage: ACCORDING TO GLYCEMIA (MAXIMUM 8 UNITS DAILY)
     Route: 058
     Dates: start: 20090401
  3. INSULIN DETEMIR [Concomitant]
     Indication: TYPE 1 DIABETES MELLITUS
     Route: 058
  4. DRUG USED IN DIABETES [Concomitant]
     Indication: TYPE 1 DIABETES MELLITUS
     Route: 048
     Dates: start: 20090101

REACTIONS (2)
  - HYPOGLYCAEMIA [None]
  - PRODUCT QUALITY ISSUE [None]
